FAERS Safety Report 22617688 (Version 1)
Quarter: 2023Q2

REPORT INFORMATION
  Report Type: Report from Study
  Country: US (occurrence: US)
  Receive Date: 20230620
  Receipt Date: 20230620
  Transmission Date: 20230721
  Serious: Yes (Other)
  Sender: FDA-Public Use
  Company Number: US-PFM-2022-05900

PATIENT

DRUGS (1)
  1. PROPRANOLOL HYDROCHLORIDE [Suspect]
     Active Substance: PROPRANOLOL HYDROCHLORIDE
     Indication: Infantile haemangioma
     Dosage: UNK
     Route: 065

REACTIONS (6)
  - Bradycardia [Unknown]
  - Sleep disorder [Unknown]
  - Irritability [Unknown]
  - Peripheral coldness [Unknown]
  - Diarrhoea [Unknown]
  - Vomiting [Unknown]
